FAERS Safety Report 10732212 (Version 2)
Quarter: 2015Q1

REPORT INFORMATION
  Report Type: Spontaneous
  Country: CA (occurrence: CA)
  Receive Date: 20150123
  Receipt Date: 20150309
  Transmission Date: 20150721
  Serious: Yes (Other)
  Sender: FDA-Public Use
  Company Number: 2015SP000136

PATIENT
  Age: 80 Year
  Sex: Female
  Weight: 40 kg

DRUGS (9)
  1. LOSEC [Concomitant]
     Active Substance: OMEPRAZOLE
  2. OMEGA                              /00661201/ [Concomitant]
  3. RISEDRONATE SODIUM. [Concomitant]
     Active Substance: RISEDRONATE SODIUM
  4. MAGNESIUM [Concomitant]
     Active Substance: MAGNESIUM
  5. OMNARIS [Suspect]
     Active Substance: CICLESONIDE
     Indication: SINUS HEADACHE
     Route: 045
     Dates: start: 201403, end: 20140815
  6. PLANTAGO OVATA [Concomitant]
     Active Substance: PLANTAGO OVATA LEAF
  7. CALCIUM [Concomitant]
     Active Substance: CALCIUM
  8. EZETROL [Concomitant]
     Active Substance: EZETIMIBE
  9. METFORMIN [Concomitant]
     Active Substance: METFORMIN HYDROCHLORIDE

REACTIONS (4)
  - Tinnitus [Recovered/Resolved]
  - Dysarthria [Recovered/Resolved]
  - Cerumen impaction [Recovered/Resolved]
  - Increased upper airway secretion [Recovered/Resolved]

NARRATIVE: CASE EVENT DATE: 201407
